FAERS Safety Report 8879103 (Version 1)
Quarter: 2012Q4

REPORT INFORMATION
  Report Type: Spontaneous
  Country: GB (occurrence: None)
  Receive Date: 20121025
  Receipt Date: 20121025
  Transmission Date: 20130627
  Serious: Yes (Other)
  Sender: FDA-Public Use
  Company Number: GB-DEXPHARM-20121402

PATIENT
  Age: 89 Year
  Sex: Male

DRUGS (8)
  1. OMEPRAZOLE [Suspect]
     Indication: DUODENAL ULCER BLEEDING
     Route: 048
     Dates: start: 20120425, end: 20120618
  2. BUSOPAN [Concomitant]
  3. CO-CODAMOL [Concomitant]
  4. DOXYCYCLINE [Concomitant]
  5. FERROUS SULPHATE [Concomitant]
  6. FINASTERIDE [Concomitant]
  7. QUININE [Concomitant]
  8. RAMIPRIL [Concomitant]

REACTIONS (4)
  - Grand mal convulsion [None]
  - Hypocalcaemia [None]
  - Hypomagnesaemia [None]
  - Tetany [None]
